FAERS Safety Report 12080244 (Version 1)
Quarter: 2016Q1

REPORT INFORMATION
  Report Type: Spontaneous
  Country: FR (occurrence: FR)
  Receive Date: 20160216
  Receipt Date: 20160216
  Transmission Date: 20160526
  Serious: Yes (Life-Threatening, Hospitalization, Other)
  Sender: FDA-Public Use
  Company Number: FR-JNJFOC-20151116231

PATIENT
  Age: 61 Year
  Sex: Male

DRUGS (1)
  1. IMBRUVICA [Suspect]
     Active Substance: IBRUTINIB
     Indication: CHRONIC LYMPHOCYTIC LEUKAEMIA
     Route: 048
     Dates: start: 201410, end: 20151109

REACTIONS (4)
  - Lung disorder [Unknown]
  - Gangrene [Recovering/Resolving]
  - Septic shock [Recovered/Resolved]
  - Infected skin ulcer [Unknown]

NARRATIVE: CASE EVENT DATE: 201511
